FAERS Safety Report 21311809 (Version 1)
Quarter: 2022Q3

REPORT INFORMATION
  Report Type: Spontaneous
  Country: US (occurrence: None)
  Receive Date: 20220909
  Receipt Date: 20220909
  Transmission Date: 20221026
  Serious: No
  Sender: FDA-Public Use
  Company Number: US-ARIS GLOBAL-202203-0491

PATIENT
  Sex: Female

DRUGS (11)
  1. OXERVATE [Suspect]
     Active Substance: CENEGERMIN-BKBJ
     Indication: Neurotrophic keratopathy
     Route: 047
     Dates: start: 20220222
  2. PROGESTERONE [Concomitant]
     Active Substance: PROGESTERONE
     Dosage: VIAL
  3. LUTEIN [Concomitant]
     Active Substance: LUTEIN
  4. OMEGA-3 2100 [Concomitant]
     Dosage: 1050-1200
  5. DOXYCYCLINE HYCLATE [Concomitant]
     Active Substance: DOXYCYCLINE HYCLATE
  6. COENZYME Q10 [Concomitant]
     Active Substance: DIETARY SUPPLEMENT\UBIDECARENONE
  7. BILBERRY [Concomitant]
     Active Substance: BILBERRY
  8. ASTAXANTHIN [Concomitant]
     Active Substance: ASTAXANTHIN
  9. ARMOUR THYROID [Concomitant]
     Active Substance: THYROID, PORCINE
  10. THERATEARS [Concomitant]
     Active Substance: CARBOXYMETHYLCELLULOSE SODIUM
  11. CEQUA [Concomitant]
     Active Substance: CYCLOSPORINE

REACTIONS (1)
  - Drug ineffective [Unknown]
